FAERS Safety Report 5131634-7 (Version None)
Quarter: 2006Q4

REPORT INFORMATION
  Report Type: 
  Country: None (occurrence: None)
  Receive Date: 20061020
  Receipt Date: 20060627
  Transmission Date: 20070319
  Serious: Yes (Disabling, Other)
  Sender: FDA-Public Use
  Company Number: PHBS2006AT09621

PATIENT
  Age: 51 Year
  Sex: Female

DRUGS (1)
  1. ZOMETA [Suspect]
     Indication: METASTASES TO BONE
     Dosage: UNK, QW4
     Route: 042
     Dates: end: 20050801

REACTIONS (4)
  - BONE DEBRIDEMENT [None]
  - OSTEOMYELITIS [None]
  - OSTEONECROSIS [None]
  - PLASTIC SURGERY [None]
